FAERS Safety Report 8070425-4 (Version None)
Quarter: 2012Q1

REPORT INFORMATION
  Report Type: 
  Country: None (occurrence: None)
  Receive Date: 20120125
  Receipt Date: 20120120
  Transmission Date: 20120608
  Serious: Yes (Life-Threatening, Hospitalization)
  Sender: FDA-Public Use
  Company Number: FR-BRISTOL-MYERS SQUIBB COMPANY-16352239

PATIENT
  Age: 81 Year
  Sex: Male

DRUGS (12)
  1. IRBESARTAN AND HYDROCHLOROTHIAZIDE [Suspect]
     Indication: HYPERTENSION
     Route: 048
  2. ATORVASTATIN CALCIUM [Concomitant]
     Route: 048
  3. PLAVIX [Concomitant]
     Route: 048
  4. ALFUZOSIN HCL [Suspect]
     Route: 048
  5. GLUCOPHAGE [Suspect]
     Indication: TYPE 2 DIABETES MELLITUS
     Route: 048
  6. EZETIMIBE [Concomitant]
     Route: 048
  7. LERCANIDIPINE [Suspect]
     Indication: HYPERTENSION
     Route: 048
  8. VITAMIN B1 TAB [Concomitant]
     Route: 048
  9. LASIX [Suspect]
     Indication: HYPERTENSION
  10. DIFFU-K [Suspect]
     Route: 048
  11. VITAMIN B6 [Concomitant]
     Route: 048
  12. NOROXIN [Concomitant]
     Dates: start: 20110913, end: 20110920

REACTIONS (7)
  - OVERDOSE [None]
  - CEREBROVASCULAR ACCIDENT [None]
  - RENAL FAILURE ACUTE [None]
  - DEHYDRATION [None]
  - LACTIC ACIDOSIS [None]
  - HYPERKALAEMIA [None]
  - HYPOVOLAEMIC SHOCK [None]
